FAERS Safety Report 11990965 (Version 2)
Quarter: 2016Q1

REPORT INFORMATION
  Report Type: Spontaneous
  Country: JP (occurrence: JP)
  Receive Date: 20160202
  Receipt Date: 20160209
  Transmission Date: 20160526
  Serious: Yes (Hospitalization, Other)
  Sender: FDA-Public Use
  Company Number: JP-009507513-1601JPN011774

PATIENT
  Age: 86 Year
  Sex: Female

DRUGS (2)
  1. DIAZOXIDE CAPSULES 25 MG ^MSD^ [Suspect]
     Active Substance: DIAZOXIDE
     Indication: INSULINOMA
     Dosage: TOTAL DAILY DOSE 150 MG
     Route: 048
  2. DIAZOXIDE CAPSULES 25 MG ^MSD^ [Suspect]
     Active Substance: DIAZOXIDE
     Dosage: TOTAL DAILY DOSE 75 MG
     Route: 048

REACTIONS (3)
  - Ketosis [Recovered/Resolved]
  - Decreased appetite [Recovered/Resolved]
  - Hyperosmolar hyperglycaemic state [Recovered/Resolved]
